FAERS Safety Report 9227726 (Version 1)
Quarter: 2013Q1

REPORT INFORMATION
  Report Type: Spontaneous
  Country: US (occurrence: None)
  Receive Date: 20121012
  Receipt Date: 20121012
  Transmission Date: 20140127
  Serious: Yes (Other)
  Sender: FDA-Public Use
  Company Number: 1000024585

PATIENT
  Age: 29 Year
  Sex: Female
  Weight: 81 kg

DRUGS (8)
  1. LEXAPRO [Suspect]
     Indication: DEPRESSION
     Route: 048
     Dates: start: 200804
  2. LEXAPRO [Suspect]
     Indication: CYCLOTHYMIC DISORDER
     Route: 048
     Dates: start: 200804
  3. ZOFRAN (ONDANSETRON) (ONDANSETRON) [Concomitant]
  4. PRENATAL VITAMIN (PRENATAL VITAMIN) (PRENATAL VITAMIN) [Concomitant]
  5. ZINC (ZINC) (ZINC) [Concomitant]
  6. FISH OIL (FISH OIL) (FISH OIL) [Concomitant]
  7. VITAMIN B-12 (CYANOCOBALAMIN) (CYANOCOBALAMIN) [Concomitant]
  8. VALTREX (VALACICLOVIR HYDROCHLORIDE) (VALACICLOVIR HYDROCHLORIDE) [Concomitant]

REACTIONS (2)
  - Hypertension [None]
  - Maternal exposure during pregnancy [None]
